FAERS Safety Report 7251731-X (Version None)
Quarter: 2011Q1

REPORT INFORMATION
  Report Type: 
  Country: None (occurrence: None)
  Receive Date: 20110128
  Receipt Date: 20110119
  Transmission Date: 20110831
  Serious: Yes (Life-Threatening, Hospitalization, Disabling)
  Sender: FDA-Public Use
  Company Number: JP-MERCK-1002USA01075

PATIENT
  Age: 86 Year
  Sex: Male

DRUGS (8)
  1. MEDICON [Concomitant]
     Route: 048
     Dates: end: 20100122
  2. PLETAL [Concomitant]
     Route: 048
     Dates: end: 20100122
  3. SHAKUYAKU-KANZO-TO [Suspect]
     Indication: HICCUPS
     Route: 048
     Dates: start: 20100109, end: 20100122
  4. MYSLEE [Concomitant]
     Route: 048
     Dates: end: 20100122
  5. MUCOSIL-10 [Concomitant]
     Route: 048
     Dates: end: 20100122
  6. PAXIL [Concomitant]
     Route: 048
     Dates: end: 20100122
  7. PEPCID RPD [Suspect]
     Route: 048
     Dates: end: 20100122
  8. MAGNESIUM OXIDE [Concomitant]
     Route: 048
     Dates: end: 20100122

REACTIONS (3)
  - ALTERED STATE OF CONSCIOUSNESS [None]
  - TORSADE DE POINTES [None]
  - LONG QT SYNDROME [None]
